FAERS Safety Report 12419681 (Version 2)
Quarter: 2016Q2

REPORT INFORMATION
  Report Type: Report from Study
  Country: KR (occurrence: KR)
  Receive Date: 20160531
  Receipt Date: 20160606
  Transmission Date: 20160815
  Serious: Yes (Hospitalization)
  Sender: FDA-Public Use
  Company Number: KR-GLAXOSMITHKLINE-KR2016GSK076277

PATIENT
  Age: 84 Year
  Sex: Female
  Weight: 76.5 kg

DRUGS (11)
  1. SYMBICORT [Concomitant]
     Active Substance: BUDESONIDE\FORMOTEROL FUMARATE DIHYDRATE
     Indication: ASTHMA
     Dosage: 1 DF, BID
     Route: 055
     Dates: start: 20151207, end: 20151210
  2. FLUTICASONE FUROATE + VILANTEROL TRIFENATATE [Suspect]
     Active Substance: FLUTICASONE FUROATE\VILANTEROL TRIFENATATE
     Indication: ASTHMA
     Dosage: 25 MG, 1D
     Route: 055
     Dates: start: 20151211
  3. ASIMA [Concomitant]
     Indication: ASTHMA
     Dosage: 400 MG, 1D
     Route: 055
     Dates: start: 20110214
  4. RIVOTRIL [Concomitant]
     Active Substance: CLONAZEPAM
     Indication: DEMENTIA
     Dosage: 0.75 MG, 1D
     Route: 048
     Dates: start: 20151109
  5. VENTOLIN [Concomitant]
     Active Substance: ALBUTEROL SULFATE
     Indication: ASTHMA
     Dosage: 2 DF, 1D
     Route: 055
     Dates: start: 20100531
  6. ARICEPT [Concomitant]
     Active Substance: DONEPEZIL HYDROCHLORIDE
     Indication: DEMENTIA
     Dosage: 5 MG, 1D
     Route: 048
     Dates: start: 20151109
  7. SINGULAIR [Concomitant]
     Active Substance: MONTELUKAST SODIUM
     Indication: ASTHMA
     Dosage: 10 MG, 1D
     Route: 048
     Dates: start: 20080118
  8. PROVIGIL (NOS) [Concomitant]
     Indication: DEMENTIA
     Dosage: 50 MG, 1D
     Route: 048
     Dates: start: 20151109
  9. STILNOX [Concomitant]
     Active Substance: ZOLPIDEM TARTRATE
     Indication: DEMENTIA
     Dosage: 10 MG, 1D
     Route: 048
     Dates: start: 20151019
  10. SPIRIVA [Concomitant]
     Active Substance: TIOTROPIUM BROMIDE MONOHYDRATE
     Indication: ASTHMA
     Dosage: 2 DF, 1D
     Route: 055
     Dates: start: 20151007
  11. CLARITYNE [Concomitant]
     Active Substance: LORATADINE
     Indication: RHINITIS
     Dosage: 10 MG, 1D
     Route: 048
     Dates: start: 20151222

REACTIONS (1)
  - Diabetic neuropathy [Recovered/Resolved]

NARRATIVE: CASE EVENT DATE: 20160106
